FAERS Safety Report 18453850 (Version 1)
Quarter: 2020Q4

REPORT INFORMATION
  Report Type: Report from Study
  Country: US (occurrence: US)
  Receive Date: 20201102
  Receipt Date: 20201102
  Transmission Date: 20210114
  Serious: Yes (Hospitalization, Other)
  Sender: FDA-Public Use
  Company Number: US-TAKEDA-US201913088

PATIENT
  Age: 34 Year
  Sex: Male
  Weight: 52 kg

DRUGS (40)
  1. TEDUGLUTIDE [Suspect]
     Active Substance: TEDUGLUTIDE
     Indication: SHORT-BOWEL SYNDROME
     Dosage: 2.5 MILLIGRAM, TED DAILY DOSE MG KG 0.05, TED DOSES PER WEEK 7
     Route: 065
     Dates: start: 20140403, end: 20140512
  2. TEDUGLUTIDE [Suspect]
     Active Substance: TEDUGLUTIDE
     Dosage: 2.7 MILLIGRAM, TED DAILY DOSE MG KG 999.0, TED DOSES PER WEEK 7
     Route: 065
     Dates: start: 20190322, end: 20190407
  3. TEDUGLUTIDE [Suspect]
     Active Substance: TEDUGLUTIDE
     Dosage: 1.3 MILLIGRAM, TED DAILY DOSE MG KG 999.0, TED DOSS PER WEEK 7
     Route: 065
     Dates: start: 20190412
  4. IOHEXOL [Concomitant]
     Active Substance: IOHEXOL
     Indication: IMAGING PROCEDURE
  5. TEDUGLUTIDE [Suspect]
     Active Substance: TEDUGLUTIDE
     Indication: SHORT-BOWEL SYNDROME
     Dosage: 2.5 MILLIGRAM, TED DAILY DOSE MG KG 0.05, TED DOSES PER WEEK 7
     Route: 065
     Dates: start: 20140403, end: 20140512
  6. TEDUGLUTIDE [Suspect]
     Active Substance: TEDUGLUTIDE
     Dosage: 2.5 MILLIGRAM, TED DAILY DOSE MG KG 0.05, TED DOSES PER WEEK 7
     Route: 065
     Dates: start: 20140521, end: 20150323
  7. TEDUGLUTIDE [Suspect]
     Active Substance: TEDUGLUTIDE
     Dosage: 2.2 MILLIGRAM, TED DAILY DOSE MG KG 0.05, TED DOSES PER WEEK 7
     Route: 065
     Dates: start: 20150406, end: 20150923
  8. TEDUGLUTIDE [Suspect]
     Active Substance: TEDUGLUTIDE
     Dosage: 2.7 MILLIGRAM, TED DAILY DOSE MG KG 999.0, TED DOSES PER WEEK 7
     Route: 065
     Dates: start: 20190322, end: 20190407
  9. ONDANSETRON [Concomitant]
     Active Substance: ONDANSETRON
     Indication: PROCEDURAL NAUSEA
  10. GLYCERIN. [Concomitant]
     Active Substance: GLYCERIN
     Indication: PRODUCT USED FOR UNKNOWN INDICATION
  11. TEDUGLUTIDE [Suspect]
     Active Substance: TEDUGLUTIDE
     Indication: SHORT-BOWEL SYNDROME
     Dosage: 2.5 MILLIGRAM, TED DAILY DOSE MG KG 0.05, TED DOSES PER WEEK 7
     Route: 065
     Dates: start: 20140403, end: 20140512
  12. TEDUGLUTIDE [Suspect]
     Active Substance: TEDUGLUTIDE
     Indication: SHORT-BOWEL SYNDROME
     Dosage: 2.5 MILLIGRAM, TED DAILY DOSE MG KG 0.05, TED DOSES PER WEEK 7
     Route: 065
     Dates: start: 20140403, end: 20140512
  13. TEDUGLUTIDE [Suspect]
     Active Substance: TEDUGLUTIDE
     Dosage: 1.25 MILLIGRAM, TED DAILY DOSE MG KG 0.02, TED DOSES PER WEEK 7
     Route: 065
     Dates: start: 20140513, end: 20140520
  14. TEDUGLUTIDE [Suspect]
     Active Substance: TEDUGLUTIDE
     Dosage: 1.1 MILLIGRAM, TED DAILY DOSE MG KG 0.02, TED DOSES PER WEEK 7
     Route: 065
     Dates: start: 20150324, end: 20150406
  15. TEDUGLUTIDE [Suspect]
     Active Substance: TEDUGLUTIDE
     Dosage: 1.1 MILLIGRAM, TED DAILY DOSE MG KG 0.02, TED DOSES PER WEEK 7
     Route: 065
     Dates: start: 20150324, end: 20150406
  16. TEDUGLUTIDE [Suspect]
     Active Substance: TEDUGLUTIDE
     Dosage: 2.2 MILLIGRAM, TED DAILY DOSE MG KG 0.05, TED DOSES PER WEEK 7
     Route: 065
     Dates: start: 20150406, end: 20150923
  17. TEDUGLUTIDE [Suspect]
     Active Substance: TEDUGLUTIDE
     Dosage: 2.2 MILLIGRAM, TED DAILY DOSE MG KG 0.05, TED DOSES PER WEEK 7
     Route: 065
     Dates: start: 20150406, end: 20150923
  18. TEDUGLUTIDE [Suspect]
     Active Substance: TEDUGLUTIDE
     Dosage: 2.5 MILLIGRAM, TED DAILY DOSE MG KG 0.05, TED DOSES PER WEEK 7
     Route: 065
     Dates: start: 20150924, end: 20190322
  19. TEDUGLUTIDE [Suspect]
     Active Substance: TEDUGLUTIDE
     Dosage: 2.5 MILLIGRAM, TED DAILY DOSE MG KG 0.05, TED DOSES PER WEEK 7
     Route: 065
     Dates: start: 20150924, end: 20190322
  20. TEDUGLUTIDE [Suspect]
     Active Substance: TEDUGLUTIDE
     Dosage: 2.7 MILLIGRAM, TED DAILY DOSE MG KG 999.0, TED DOSES PER WEEK 7
     Route: 065
     Dates: start: 20190322, end: 20190407
  21. TEDUGLUTIDE [Suspect]
     Active Substance: TEDUGLUTIDE
     Dosage: 2.5 MILLIGRAM, TED DAILY DOSE MG KG 0.05, TED DOSES PER WEEK 7
     Route: 065
     Dates: start: 20140521, end: 20150323
  22. TEDUGLUTIDE [Suspect]
     Active Substance: TEDUGLUTIDE
     Dosage: 1.3 MILLIGRAM, TED DAILY DOSE MG KG 999.0, TED DOSS PER WEEK 7
     Route: 065
     Dates: start: 20190412
  23. TEDUGLUTIDE [Suspect]
     Active Substance: TEDUGLUTIDE
     Dosage: 2.7 MILLIGRAM, TED DAILY DOSE MG KG 999.0, TED DOSES PER WEEK 7
     Route: 065
     Dates: start: 20190322, end: 20190407
  24. POTASSIUM [Concomitant]
     Active Substance: POTASSIUM
     Indication: PRODUCT USED FOR UNKNOWN INDICATION
  25. TRAMADOL. [Concomitant]
     Active Substance: TRAMADOL
     Indication: ENDOTRACHEAL INTUBATION
     Dosage: 50 MILLIGRAM
     Route: 048
     Dates: start: 20181023, end: 20181023
  26. TEDUGLUTIDE [Suspect]
     Active Substance: TEDUGLUTIDE
     Dosage: 2.5 MILLIGRAM, TED DAILY DOSE MG KG 0.05, TED DOSES PER WEEK 7
     Route: 065
     Dates: start: 20150924, end: 20190322
  27. TEDUGLUTIDE [Suspect]
     Active Substance: TEDUGLUTIDE
     Dosage: 1.3 MILLIGRAM, TED DAILY DOSE MG KG 999.0, TED DOSS PER WEEK 7
     Route: 065
     Dates: start: 20190412
  28. URSODIOL. [Concomitant]
     Active Substance: URSODIOL
     Indication: SHORT-BOWEL SYNDROME
     Dosage: 1 CAP AS NEEDED
     Route: 048
     Dates: start: 20190710
  29. TEDUGLUTIDE [Suspect]
     Active Substance: TEDUGLUTIDE
     Dosage: 1.25 MILLIGRAM, TED DAILY DOSE MG KG 0.02, TED DOSES PER WEEK 7
     Route: 065
     Dates: start: 20140513, end: 20140520
  30. TEDUGLUTIDE [Suspect]
     Active Substance: TEDUGLUTIDE
     Dosage: 2.5 MILLIGRAM, TED DAILY DOSE MG KG 0.05, TED DOSES PER WEEK 7
     Route: 065
     Dates: start: 20140521, end: 20150323
  31. TEDUGLUTIDE [Suspect]
     Active Substance: TEDUGLUTIDE
     Dosage: 1.1 MILLIGRAM, TED DAILY DOSE MG KG 0.02, TED DOSES PER WEEK 7
     Route: 065
     Dates: start: 20150324, end: 20150406
  32. TEDUGLUTIDE [Suspect]
     Active Substance: TEDUGLUTIDE
     Dosage: 1.1 MILLIGRAM, TED DAILY DOSE MG KG 0.02, TED DOSES PER WEEK 7
     Route: 065
     Dates: start: 20150324, end: 20150406
  33. TEDUGLUTIDE [Suspect]
     Active Substance: TEDUGLUTIDE
     Dosage: 2.2 MILLIGRAM, TED DAILY DOSE MG KG 0.05, TED DOSES PER WEEK 7
     Route: 065
     Dates: start: 20150406, end: 20150923
  34. TEDUGLUTIDE [Suspect]
     Active Substance: TEDUGLUTIDE
     Dosage: 1.25 MILLIGRAM, TED DAILY DOSE MG KG 0.02, TED DOSES PER WEEK 7
     Route: 065
     Dates: start: 20140513, end: 20140520
  35. TEDUGLUTIDE [Suspect]
     Active Substance: TEDUGLUTIDE
     Dosage: 1.25 MILLIGRAM, TED DAILY DOSE MG KG 0.02, TED DOSES PER WEEK 7
     Route: 065
     Dates: start: 20140513, end: 20140520
  36. TEDUGLUTIDE [Suspect]
     Active Substance: TEDUGLUTIDE
     Dosage: 2.5 MILLIGRAM, TED DAILY DOSE MG KG 0.05, TED DOSES PER WEEK 7
     Route: 065
     Dates: start: 20140521, end: 20150323
  37. TEDUGLUTIDE [Suspect]
     Active Substance: TEDUGLUTIDE
     Dosage: 2.5 MILLIGRAM, TED DAILY DOSE MG KG 0.05, TED DOSES PER WEEK 7
     Route: 065
     Dates: start: 20150924, end: 20190322
  38. TEDUGLUTIDE [Suspect]
     Active Substance: TEDUGLUTIDE
     Dosage: 1.3 MILLIGRAM, TED DAILY DOSE MG KG 999.0, TED DOSS PER WEEK 7
     Route: 065
     Dates: start: 20190412
  39. SUCCINYLCHOLINE [SUXAMETHONIUM] [Concomitant]
     Active Substance: SUCCINYLCHOLINE
     Indication: SEDATION
     Dosage: 120 MILLIGRAM
     Route: 042
     Dates: start: 20190116, end: 20190116
  40. QUETIAPINE. [Concomitant]
     Active Substance: QUETIAPINE
     Indication: SEDATION
     Dosage: 25 MILLIGRAM, QID
     Route: 048
     Dates: start: 20190116, end: 20190118

REACTIONS (4)
  - Pulmonary embolism [Recovered/Resolved]
  - Encephalopathy [Recovered/Resolved]
  - Tinnitus [Not Recovered/Not Resolved]
  - Hyponatraemia [Recovered/Resolved]

NARRATIVE: CASE EVENT DATE: 20190101
